FAERS Safety Report 7717574 (Version 7)
Quarter: 2015Q1

REPORT INFORMATION
  Report Type: Spontaneous
  Country: US (occurrence: US)
  Receive Date: 20101217
  Receipt Date: 20150218
  Transmission Date: 20150721
  Serious: Yes (Life-Threatening, Hospitalization, Congenital Anomaly, Other)
  Sender: FDA-Public Use
  Company Number: US-PFIZER INC-2010169105

PATIENT
  Sex: Male
  Weight: 3 kg

DRUGS (14)
  1. ZOLOFT [Suspect]
     Active Substance: SERTRALINE HYDROCHLORIDE
     Indication: DEPRESSION
     Dosage: UNK
     Route: 064
     Dates: start: 20030227, end: 2010
  2. EFFEXOR [Suspect]
     Active Substance: VENLAFAXINE HYDROCHLORIDE
     Indication: DEPRESSION
  3. SUDAFED [Concomitant]
     Active Substance: PSEUDOEPHEDRINE HYDROCHLORIDE
     Dosage: UNK
     Route: 064
  4. EFFEXOR XR [Suspect]
     Active Substance: VENLAFAXINE HYDROCHLORIDE
     Dosage: 150 MG, 75 MG AND 37.5 MG
     Route: 064
     Dates: start: 20051115, end: 200907
  5. KEFLEX [Concomitant]
     Active Substance: CEPHALEXIN
     Indication: INFECTION
     Dosage: 500 MG, DAILY
     Route: 064
     Dates: start: 20090824, end: 20100302
  6. SERTRALINE [Concomitant]
     Active Substance: SERTRALINE HYDROCHLORIDE
     Indication: DEPRESSION
     Dosage: 25 MG, DAILY
     Route: 064
     Dates: start: 20091021, end: 20100317
  7. KEFLEX [Concomitant]
     Active Substance: CEPHALEXIN
     Dosage: 500 MG, 3X/DAY
     Route: 064
     Dates: start: 20100113
  8. CEPHALEXIN. [Concomitant]
     Active Substance: CEPHALEXIN
     Indication: INFECTION
     Dosage: 500 MG, DAILY
     Route: 064
     Dates: start: 20090921, end: 20100303
  9. MULTIVITAMINS [Concomitant]
     Active Substance: VITAMINS
     Dosage: UNK
     Route: 064
  10. EFFEXOR [Suspect]
     Active Substance: VENLAFAXINE HYDROCHLORIDE
     Indication: ROUTINE HEALTH MAINTENANCE
     Dosage: 150 MG, 75 MG AND 37.5 MG
     Route: 064
     Dates: start: 2003, end: 200910
  11. PRENATAL VITAMINS [Concomitant]
     Active Substance: VITAMINS
     Indication: VITAMIN SUPPLEMENTATION
     Dosage: UNK, AS DIRECTED
     Route: 064
  12. ADVIL [Concomitant]
     Active Substance: IBUPROFEN
     Dosage: UNK
     Route: 064
  13. EFFEXOR XR [Suspect]
     Active Substance: VENLAFAXINE HYDROCHLORIDE
     Indication: DEPRESSION
     Dosage: UNK MG, UNK
     Route: 064
     Dates: start: 20050627, end: 200906
  14. TYLENOL COLD [Concomitant]
     Active Substance: ACETAMINOPHEN\CHLORPHENIRAMINE MALEATE\PHENYLPROPANOLAMINE
     Dosage: UNK
     Route: 064

REACTIONS (20)
  - Ecchymosis [Unknown]
  - Atrial septal defect [Unknown]
  - Pulmonary artery stenosis congenital [Recovering/Resolving]
  - Respiratory distress [Unknown]
  - Supraventricular tachycardia [Recovered/Resolved]
  - Patent ductus arteriosus [Unknown]
  - Pulmonary hypoplasia [Unknown]
  - Cardiomegaly [Unknown]
  - Eczema [Unknown]
  - Ear infection [Unknown]
  - Phimosis [Unknown]
  - Tachypnoea [Recovering/Resolving]
  - Pulmonary hypertension [Unknown]
  - Motor dysfunction [Unknown]
  - Transposition of the great vessels [Unknown]
  - Ventricular septal defect [Unknown]
  - Left ventricular hypertrophy [Unknown]
  - Exposure during pregnancy [Unknown]
  - Autism [Unknown]
  - Viral pharyngitis [Unknown]

NARRATIVE: CASE EVENT DATE: 20100119
